FAERS Safety Report 12373213 (Version 1)
Quarter: 2016Q2

REPORT INFORMATION
  Report Type: Spontaneous
  Country: US (occurrence: US)
  Receive Date: 20160516
  Receipt Date: 20160516
  Transmission Date: 20160815
  Serious: No
  Sender: FDA-Public Use
  Company Number: US-MDT-ADR-2016-00139

PATIENT
  Age: 44 Year
  Sex: Female

DRUGS (3)
  1. COMPOUNDED BACLOFEN [Suspect]
     Active Substance: BACLOFEN
     Dosage: 26.793 MCG/DAY
     Route: 037
  2. LIORESAL [Suspect]
     Active Substance: BACLOFEN
     Route: 037
  3. COMPOUNDED MORPHINE [Suspect]
     Active Substance: MORPHINE
     Dosage: 9303 MG/DAY
     Route: 037

REACTIONS (2)
  - Hypoaesthesia [Not Recovered/Not Resolved]
  - Infusion site mass [Not Recovered/Not Resolved]
